FAERS Safety Report 6991276-5 (Version None)
Quarter: 2010Q3

REPORT INFORMATION
  Report Type: 
  Country: None (occurrence: None)
  Receive Date: 20100916
  Receipt Date: 20081018
  Transmission Date: 20110219
  Serious: No
  Sender: FDA-Public Use
  Company Number: US-WYE-H06199608

PATIENT
  Sex: Female

DRUGS (2)
  1. PREMARIN [Suspect]
     Indication: PRODUCT USED FOR UNKNOWN INDICATION
     Dosage: ^0.069 MG^
     Route: 048
     Dates: start: 20071226, end: 20080501
  2. PREMARIN [Suspect]
     Dosage: ^0.03 MG^
     Route: 048
     Dates: start: 20080501

REACTIONS (3)
  - MUSCLE SPASMS [None]
  - NONSPECIFIC REACTION [None]
  - RASH [None]
